FAERS Safety Report 8863204 (Version 2)
Quarter: 2012Q4

REPORT INFORMATION
  Report Type: 
  Country: US (occurrence: US)
  Receive Date: 20121025
  Receipt Date: 20121214
  Transmission Date: 20130627
  Serious: No
  Sender: FDA-Public Use
  Company Number: US-VERTEX PHARMACEUTICAL INC.-2012-023451

PATIENT
  Age: 56 None
  Sex: Male
  Weight: 106 kg

DRUGS (8)
  1. VX-950 (TELAPREVIR) [Suspect]
     Indication: HEPATITIS C
     Dosage: 750 mg, tid
     Route: 048
  2. PEGASYS [Concomitant]
     Indication: HEPATITIS C
     Dosage: 180 ?g,
     Route: 058
  3. RIBAVIRIN [Concomitant]
     Indication: HEPATITIS C
     Dosage: 200 mg, UNK
  4. WELLBUTRIN [Concomitant]
     Dosage: 100 mg, UNK
     Route: 048
  5. LISINOPRIL AND HYDROCHLOROTHIAZIDE [Concomitant]
     Dosage: 20-12.5
     Route: 048
  6. CENTRUM                            /00554501/ [Concomitant]
     Route: 048
  7. B COMPLEX                          /00212701/ [Concomitant]
  8. ZYRTEC [Concomitant]
     Dosage: 10 mg, UNK
     Route: 048

REACTIONS (6)
  - Dizziness [Unknown]
  - Sinusitis [Unknown]
  - Epistaxis [Unknown]
  - Weight decreased [Unknown]
  - Fatigue [Unknown]
  - Nausea [Unknown]
